FAERS Safety Report 5593142-9 (Version None)
Quarter: 2008Q1

REPORT INFORMATION
  Report Type: 
  Country: None (occurrence: None)
  Receive Date: 20080116
  Receipt Date: 20080109
  Transmission Date: 20080703
  Serious: Yes (Hospitalization, Other)
  Sender: FDA-Public Use
  Company Number: DK-JNJFOC-20080102210

PATIENT
  Age: 46 Year
  Sex: Male

DRUGS (4)
  1. INFLIXIMAB [Suspect]
     Indication: PSORIASIS
     Route: 042
  2. INFLIXIMAB [Suspect]
     Indication: PSORIATIC ARTHROPATHY
     Route: 042
  3. CYCLOSPORINE [Concomitant]
     Indication: PSORIASIS
  4. CYCLOSPORINE [Concomitant]
     Indication: PSORIATIC ARTHROPATHY

REACTIONS (4)
  - BLOOD CULTURE POSITIVE [None]
  - DERMATITIS ATOPIC [None]
  - IMPETIGO [None]
  - STAPHYLOCOCCAL INFECTION [None]
